FAERS Safety Report 5235156-4 (Version None)
Quarter: 2007Q1

REPORT INFORMATION
  Report Type: 
  Country: None (occurrence: None)
  Receive Date: 20070207
  Receipt Date: 20050105
  Transmission Date: 20070707
  Serious: Yes (Other)
  Sender: FDA-Public Use
  Company Number: PHFR2005GB00458

PATIENT
  Age: 92 Year
  Sex: Female

DRUGS (6)
  1. DICLOFENAC (DICLOFENAC) [Suspect]
     Indication: PAIN
     Dosage: 50 MG TID ORAL
     Route: 048
     Dates: end: 20041127
  2. ASPIRIN [Suspect]
     Indication: PAIN
     Dosage: 75 MG QD ORAL
     Route: 048
     Dates: end: 20041127
  3. ISOSORBIDE MONONITRATE [Concomitant]
  4. ALLOPURINOL SODIUM [Concomitant]
  5. ATROVENT [Concomitant]
  6. BECLOMETHASONE DIPROPIONATE [Concomitant]

REACTIONS (1)
  - GASTRIC ULCER [None]
